FAERS Safety Report 13740244 (Version 1)
Quarter: 2017Q3

REPORT INFORMATION
  Report Type: Spontaneous
  Country: US (occurrence: US)
  Receive Date: 20170710
  Receipt Date: 20170710
  Transmission Date: 20171127
  Serious: No
  Sender: FDA-Public Use
  Company Number: None

PATIENT
  Age: 22 Year
  Sex: Female
  Weight: 65.25 kg

DRUGS (1)
  1. TERBINAFINE HCL [Suspect]
     Active Substance: TERBINAFINE HYDROCHLORIDE
     Indication: ONYCHOMYCOSIS
     Dosage: ?          OTHER STRENGTH:MG/MG;QUANTITY:90 TABLET(S);?
     Route: 048
     Dates: start: 20170515, end: 20170626

REACTIONS (1)
  - Ageusia [None]

NARRATIVE: CASE EVENT DATE: 20170623
